FAERS Safety Report 8587496-9 (Version None)
Quarter: 2012Q3

REPORT INFORMATION
  Report Type: 
  Country: None (occurrence: None)
  Receive Date: 20120810
  Receipt Date: 20120412
  Transmission Date: 20120928
  Serious: Yes (Other)
  Sender: FDA-Public Use
  Company Number: CO-PFIZER INC-2012193575

PATIENT
  Age: 63 Year
  Sex: Male

DRUGS (5)
  1. LOSARTAN [Concomitant]
     Dosage: 50 MG, EVERY 24 HOURS
  2. AMLODIPINE [Concomitant]
     Dosage: 5 MG, EVERY 24 HOURS
  3. HYDROCHLOROTHIAZIDE [Concomitant]
     Dosage: 25 MG, EVERY 24 HOURS
  4. ASPIRIN [Concomitant]
     Dosage: 100 MG, EVERY 24 HOURS
  5. LIPITOR [Suspect]
     Indication: DYSLIPIDAEMIA
     Dosage: 10 MG, EVERY 24 HOURS

REACTIONS (2)
  - OBESITY [None]
  - HYPERTENSIVE EMERGENCY [None]
